FAERS Safety Report 9131277 (Version 1)
Quarter: 2013Q1

REPORT INFORMATION
  Report Type: Report from Study
  Country: CO (occurrence: CO)
  Receive Date: 20130301
  Receipt Date: 20130301
  Transmission Date: 20140127
  Serious: Yes (Death, Hospitalization)
  Sender: FDA-Public Use
  Company Number: CO-SANOFI-AVENTIS-2013SA019608

PATIENT
  Age: 52 Year
  Sex: Female

DRUGS (5)
  1. INSULIN GLARGINE [Suspect]
     Indication: DIABETES MELLITUS
     Route: 058
     Dates: start: 2011, end: 2013
  2. METOPROLOL [Concomitant]
     Indication: HYPERTENSION
     Route: 048
  3. LOSARTAN [Concomitant]
     Indication: HYPERTENSION
     Route: 048
     Dates: end: 2013
  4. CLONIDINE [Concomitant]
     Indication: HYPERTENSION
     Route: 048
     Dates: end: 2013
  5. ERYTHROPOIETIN [Concomitant]
     Indication: RENAL FAILURE CHRONIC
     Route: 058
     Dates: end: 2013

REACTIONS (1)
  - Sepsis [Fatal]
